FAERS Safety Report 12864541 (Version 1)
Quarter: 2016Q4

REPORT INFORMATION
  Report Type: Spontaneous
  Country: DE (occurrence: DE)
  Receive Date: 20161020
  Receipt Date: 20161020
  Transmission Date: 20170207
  Serious: Yes (Other)
  Sender: FDA-Public Use
  Company Number: DE-ROCHE-1843823

PATIENT
  Sex: Male

DRUGS (2)
  1. ROACTEMRA [Suspect]
     Active Substance: TOCILIZUMAB
     Indication: TEMPORAL ARTERITIS
     Route: 042
     Dates: start: 20160927
  2. METHOTREXATE. [Concomitant]
     Active Substance: METHOTREXATE
     Indication: TEMPORAL ARTERITIS

REACTIONS (3)
  - Product use issue [Unknown]
  - Off label use [Unknown]
  - Basal cell carcinoma [Not Recovered/Not Resolved]
